FAERS Safety Report 5950989-4 (Version None)
Quarter: 2008Q4

REPORT INFORMATION
  Report Type: 
  Country: None (occurrence: None)
  Receive Date: 20081110
  Receipt Date: 20081024
  Transmission Date: 20090506
  Serious: Yes (Hospitalization)
  Sender: FDA-Public Use
  Company Number: 231133K08USA

PATIENT
  Age: 33 Year
  Sex: Female
  Weight: 95 kg

DRUGS (11)
  1. REBIF [Suspect]
     Indication: MULTIPLE SCLEROSIS
     Dosage: 44 MCG, 3 IN 1 WEEKS, SUBCUTANEOUS
     Route: 058
     Dates: start: 20040114
  2. METHADONE HCL [Suspect]
     Indication: PAIN
     Dosage: 3 IN 1 DAYS
     Dates: start: 20080101, end: 20080101
  3. OXYCODONE HCL [Suspect]
     Indication: PAIN
     Dosage: 3 IN 1 DAYS
     Dates: start: 20040101, end: 20080101
  4. NEURONTIN [Concomitant]
  5. CYMBALTA [Concomitant]
  6. XANAX [Concomitant]
  7. KLONOPIN [Concomitant]
  8. AMBIEN [Concomitant]
  9. PROTONIX [Concomitant]
  10. MIDRIN (MIDRID) [Concomitant]
  11. ZANAFLEX [Concomitant]

REACTIONS (17)
  - ALOPECIA [None]
  - BLOOD ELECTROLYTES DECREASED [None]
  - BLOOD PRESSURE DECREASED [None]
  - DEHYDRATION [None]
  - DIARRHOEA [None]
  - DISEASE RECURRENCE [None]
  - DRUG WITHDRAWAL SYNDROME [None]
  - EPSTEIN-BARR VIRUS INFECTION [None]
  - FALL [None]
  - INCOHERENT [None]
  - INCORRECT DOSE ADMINISTERED [None]
  - INFECTION [None]
  - LETHARGY [None]
  - MULTIPLE ALLERGIES [None]
  - RESTLESS LEGS SYNDROME [None]
  - TREATMENT NONCOMPLIANCE [None]
  - VOMITING [None]
